FAERS Safety Report 7311436-3 (Version None)
Quarter: 2011Q1

REPORT INFORMATION
  Report Type: 
  Country: None (occurrence: None)
  Receive Date: 20110224
  Receipt Date: 20110209
  Transmission Date: 20110831
  Serious: Yes (Death)
  Sender: FDA-Public Use
  Company Number: US-TYCO HEALTHCARE/MALLINCKRODT-T201100356

PATIENT
  Age: 39 Year
  Sex: Female

DRUGS (3)
  1. FENTANYL-100 [Suspect]
  2. ALPRAZOLAM [Suspect]
  3. COCAINE [Suspect]

REACTIONS (1)
  - CARDIO-RESPIRATORY ARREST [None]
